FAERS Safety Report 23803845 (Version 1)
Quarter: 2024Q2

REPORT INFORMATION
  Report Type: Spontaneous
  Country: NO (occurrence: NO)
  Receive Date: 20240501
  Receipt Date: 20240501
  Transmission Date: 20240716
  Serious: Yes (Other)
  Sender: FDA-Public Use
  Company Number: None

PATIENT
  Age: 19 Year
  Sex: Female

DRUGS (6)
  1. CYTOTEC [Suspect]
     Active Substance: MISOPROSTOL
     Indication: Abortion induced
     Dosage: 0.8 MG, SINGLE
     Route: 048
     Dates: start: 20240410, end: 20240410
  2. MIFEPRISTONE [Suspect]
     Active Substance: MIFEPRISTONE
     Indication: Abortion induced
     Dosage: 200 MG, SINGLE
     Dates: start: 20240410, end: 20240410
  3. ACETAMINOPHEN [Concomitant]
     Active Substance: ACETAMINOPHEN
     Indication: Pain
     Dosage: 1 G, SINGLE (UNCERTAIN UPTAKE DUE TO VOMITING)
     Dates: start: 20240410, end: 20240410
  4. CODEINE PHOSPHATE [Concomitant]
     Active Substance: CODEINE PHOSPHATE
     Indication: Pain
     Dosage: 25 MG, SINGLE (UNCERTAIN UPTAKE DUE TO VOMITING)
     Dates: start: 20240410, end: 20240410
  5. METOCLOPRAMIDE HYDROCHLORIDE [Concomitant]
     Active Substance: METOCLOPRAMIDE HYDROCHLORIDE
     Indication: Nausea
     Dosage: 10 MG, SINGLE (UNCERTAIN UPTAKE DUE TO VOMITING)
     Dates: start: 20240410, end: 20240410
  6. IBUPROFEN [Concomitant]
     Active Substance: IBUPROFEN
     Indication: Pain
     Dosage: 400 MG, SINGLE (UNCERTAIN UPTAKE DUE TO VOMITING)
     Dates: start: 20240410, end: 20240410

REACTIONS (2)
  - Pancreatitis acute [Recovering/Resolving]
  - Off label use [Unknown]

NARRATIVE: CASE EVENT DATE: 20240410
